FAERS Safety Report 20911463 (Version 2)
Quarter: 2022Q4

REPORT INFORMATION
  Report Type: Spontaneous
  Country: US (occurrence: US)
  Receive Date: 20220603
  Receipt Date: 20221109
  Transmission Date: 20230113
  Serious: No
  Sender: FDA-Public Use
  Company Number: US-BRISTOL-MYERS SQUIBB COMPANY-2022-042983

PATIENT
  Age: 84 Year
  Sex: Female

DRUGS (1)
  1. POMALYST [Suspect]
     Active Substance: POMALIDOMIDE
     Indication: Plasma cell myeloma
     Dosage: 1-21 OF 28 DAYS CYCLE
     Route: 048
     Dates: start: 20200519

REACTIONS (3)
  - Fatigue [Unknown]
  - Insomnia [Unknown]
  - Pruritus [Recovered/Resolved]
